FAERS Safety Report 8834657 (Version 2)
Quarter: 2012Q4

REPORT INFORMATION
  Report Type: Report from Study
  Country: DE (occurrence: DE)
  Receive Date: 20121010
  Receipt Date: 20121011
  Transmission Date: 20130627
  Serious: Yes (Death, Other)
  Sender: FDA-Public Use
  Company Number: DE-ROCHE-1013654

PATIENT
  Sex: Male
  Weight: 77 kg

DRUGS (3)
  1. XELODA [Suspect]
     Indication: GASTRIC CANCER
     Route: 048
     Dates: start: 20100803, end: 20101124
  2. TAXOTERE [Concomitant]
     Indication: GASTRIC CANCER
     Route: 042
     Dates: start: 20110105, end: 20110126
  3. OXALIPLATIN [Concomitant]
     Indication: GASTRIC CANCER
     Dosage: Brand name:Croloxat
     Route: 042
     Dates: start: 20100803, end: 20101124

REACTIONS (1)
  - Neoplasm malignant [Fatal]
